FAERS Safety Report 14526930 (Version 1)
Quarter: 2018Q1

REPORT INFORMATION
  Report Type: Spontaneous
  Country: US (occurrence: US)
  Receive Date: 20180212
  Receipt Date: 20180212
  Transmission Date: 20180509
  Serious: Yes (Other)
  Sender: FDA-Public Use
  Company Number: None

PATIENT
  Age: 64 Year
  Sex: Male

DRUGS (1)
  1. EYLEA [Suspect]
     Active Substance: AFLIBERCEPT
     Indication: DIABETIC RETINOPATHY
     Dosage: ?          OTHER FREQUENCY:ONCE PER MONTH;OTHER ROUTE:INTRAVITREAL?
     Dates: start: 20150612, end: 20180202

REACTIONS (3)
  - Vitreous floaters [None]
  - Vision blurred [None]
  - Ocular discomfort [None]

NARRATIVE: CASE EVENT DATE: 20180208
